FAERS Safety Report 6416991-3 (Version None)
Quarter: 2009Q4

REPORT INFORMATION
  Report Type: 
  Country: None (occurrence: None)
  Receive Date: 20091027
  Receipt Date: 20090917
  Transmission Date: 20100525
  Serious: No
  Sender: FDA-Public Use
  Company Number: US-ALLERGAN-0913092US

PATIENT
  Sex: Female

DRUGS (2)
  1. BRIMONIDINE TARTRATE [Suspect]
     Indication: GLAUCOMA
     Dosage: 1 GTT, BID
     Route: 047
  2. VITAMINS NOS [Concomitant]

REACTIONS (3)
  - EYE IRRITATION [None]
  - EYELID IRRITATION [None]
  - FOREIGN BODY SENSATION IN EYES [None]
